FAERS Safety Report 9447868 (Version 1)
Quarter: 2013Q3

REPORT INFORMATION
  Report Type: Spontaneous
  Country: IN (occurrence: IN)
  Receive Date: 20130808
  Receipt Date: 20130808
  Transmission Date: 20140515
  Serious: Yes (Hospitalization)
  Sender: FDA-Public Use
  Company Number: IN-SANOFI-AVENTIS-2013SA058471

PATIENT
  Age: 63 Year
  Sex: Male

DRUGS (5)
  1. CHLOROQUINE (SALT NOT SPECIFIED) [Suspect]
     Indication: HEPATIC AMOEBIASIS
     Route: 065
  2. CHLOROQUINE (SALT NOT SPECIFIED) [Suspect]
     Indication: HEPATIC AMOEBIASIS
     Route: 048
  3. PARACETAMOL [Concomitant]
     Indication: HEPATIC AMOEBIASIS
  4. PIPERACILLIN/TAZOBACTAM [Concomitant]
     Indication: HEPATIC AMOEBIASIS
  5. METRONIDAZOLE [Concomitant]
     Indication: HEPATIC AMOEBIASIS

REACTIONS (5)
  - Torsade de pointes [Recovered/Resolved]
  - Electrocardiogram QT shortened [Recovered/Resolved]
  - Electrocardiogram QT prolonged [Recovered/Resolved]
  - Ejection fraction decreased [Recovered/Resolved]
  - Syncope [Recovered/Resolved]
